FAERS Safety Report 20061563 (Version 1)
Quarter: 2021Q4

REPORT INFORMATION
  Report Type: Spontaneous
  Country: DE (occurrence: DE)
  Receive Date: 20211112
  Receipt Date: 20211112
  Transmission Date: 20220303
  Serious: No
  Sender: FDA-Public Use
  Company Number: DE-ALKEM LABORATORIES LIMITED-DE-ALKEM-2021-05690

PATIENT
  Age: 70 Year
  Sex: Female
  Weight: 72 kg

DRUGS (11)
  1. PREGABALIN [Suspect]
     Active Substance: PREGABALIN
     Indication: Product used for unknown indication
     Dosage: 800 MG/DAY, OD
     Route: 048
     Dates: start: 202009
  2. PANTOPRAZOLE [Suspect]
     Active Substance: PANTOPRAZOLE
     Indication: Product used for unknown indication
     Dosage: UNK
     Route: 065
     Dates: start: 202009
  3. NITROFURANTOIN [Suspect]
     Active Substance: NITROFURANTOIN
     Indication: Product used for unknown indication
     Dosage: 100 MG/DAY, OD
     Route: 048
     Dates: start: 202008
  4. DESFESOTERODINE SUCCINATE [Suspect]
     Active Substance: DESFESOTERODINE SUCCINATE
     Indication: Product used for unknown indication
     Dosage: 7 MG/DAY, OD
     Route: 048
     Dates: start: 202009
  5. ALLO CT [Concomitant]
     Indication: Product used for unknown indication
     Dosage: 1 MG/DAY, OD
     Route: 048
     Dates: start: 202110
  6. CYMBALTA [Concomitant]
     Active Substance: DULOXETINE HYDROCHLORIDE
     Indication: Product used for unknown indication
     Dosage: 1 MG/DAY, OD
     Route: 048
     Dates: start: 201910
  7. HYDROCHLOROTHIAZIDE [Concomitant]
     Active Substance: HYDROCHLOROTHIAZIDE
     Indication: Product used for unknown indication
     Dosage: 1 MG/DAY, OD
     Route: 048
     Dates: start: 201410
  8. LEVOTHYROXINE [Concomitant]
     Active Substance: LEVOTHYROXINE
     Indication: Product used for unknown indication
     Dosage: 1 MG/DAY, OD
     Route: 048
     Dates: start: 201010
  9. LISINOPRIL [Concomitant]
     Active Substance: LISINOPRIL
     Indication: Product used for unknown indication
     Dosage: 1 MG/DAY, OD
     Route: 048
     Dates: start: 201410
  10. SIMVASTATIN [Concomitant]
     Active Substance: SIMVASTATIN
     Indication: Product used for unknown indication
     Dosage: 1 MG/DAY, OD
     Route: 048
     Dates: start: 201010
  11. TRAMADOL [Concomitant]
     Active Substance: TRAMADOL
     Indication: Product used for unknown indication
     Dosage: 1 MG/DAY, OD
     Route: 048
     Dates: start: 202006, end: 202010

REACTIONS (3)
  - Dry throat [Not Recovered/Not Resolved]
  - Constipation [Not Recovered/Not Resolved]
  - Dry mouth [Not Recovered/Not Resolved]

NARRATIVE: CASE EVENT DATE: 20201001
